FAERS Safety Report 7803318-5 (Version None)
Quarter: 2011Q4

REPORT INFORMATION
  Report Type: 
  Country: None (occurrence: None)
  Receive Date: 20111007
  Receipt Date: 20110925
  Transmission Date: 20120403
  Serious: Yes (Other)
  Sender: FDA-Public Use
  Company Number: GB-UCBSA-042802

PATIENT
  Age: 15 Year
  Sex: Male

DRUGS (1)
  1. METHYLPHENIDATE HCL [Suspect]
     Indication: ATTENTION DEFICIT/HYPERACTIVITY DISORDER
     Route: 048
     Dates: start: 20110201

REACTIONS (5)
  - PHYSICAL ASSAULT [None]
  - AGGRESSION [None]
  - DRUG INEFFECTIVE [None]
  - PERSONALITY CHANGE [None]
  - MOOD SWINGS [None]
